FAERS Safety Report 8508459-5 (Version None)
Quarter: 2012Q3

REPORT INFORMATION
  Report Type: 
  Country: None (occurrence: None)
  Receive Date: 20120703
  Receipt Date: 20120618
  Transmission Date: 20120928
  Serious: Yes (Hospitalization)
  Sender: FDA-Public Use
  Company Number: ALK_02680_2012

PATIENT
  Sex: Male

DRUGS (1)
  1. VIVITROL [Suspect]
     Indication: PRODUCT USED FOR UNKNOWN INDICATION
     Dosage: 380 MG, 1X/28 DAYS, INTRAMUSCULAR
     Route: 030
     Dates: start: 20120301

REACTIONS (2)
  - LOWER LIMB FRACTURE [None]
  - PAIN IN EXTREMITY [None]
